FAERS Safety Report 10933241 (Version 3)
Quarter: 2015Q4

REPORT INFORMATION
  Report Type: Spontaneous
  Country: US (occurrence: US)
  Receive Date: 20150320
  Receipt Date: 20151203
  Transmission Date: 20160304
  Serious: No
  Sender: FDA-Public Use
  Company Number: US-LUNDBECK-DKLU1109173

PATIENT
  Age: 71 Year
  Sex: Male

DRUGS (2)
  1. SABRIL [Suspect]
     Active Substance: VIGABATRIN
     Route: 048
     Dates: start: 20150721
  2. SABRIL [Suspect]
     Active Substance: VIGABATRIN
     Indication: EPILEPSY
     Route: 065

REACTIONS (4)
  - Memory impairment [Unknown]
  - Dizziness postural [Unknown]
  - Fatigue [Unknown]
  - Bradykinesia [Unknown]

NARRATIVE: CASE EVENT DATE: 20150210
